FAERS Safety Report 16347601 (Version 1)
Quarter: 2019Q3

REPORT INFORMATION
  Report Type: Spontaneous
  Country: US (occurrence: US)
  Receive Date: 20190522
  Receipt Date: 20190522
  Transmission Date: 20191004
  Serious: Yes (Hospitalization)
  Sender: FDA-Public Use
  Company Number: None

PATIENT
  Age: 63 Year
  Sex: Female

DRUGS (8)
  1. ACETAMINOPHN, ASPIRIN LOW, ATORVASTATIN [Concomitant]
  2. CRANBERRY, DILTIAZEM, FENOFIBRATE [Concomitant]
  3. NOVOLOG, PAXIL [Concomitant]
  4. TEMOZOLOMIDE. [Suspect]
     Active Substance: TEMOZOLOMIDE
     Indication: BRAIN NEOPLASM MALIGNANT
     Dosage: ?          OTHER FREQUENCY:DAILY FOR 42 DAYS;?
     Route: 048
     Dates: start: 20190411
  5. TEMOZOLOMIDE. [Suspect]
     Active Substance: TEMOZOLOMIDE
     Indication: BRAIN NEOPLASM MALIGNANT
     Dosage: ?          OTHER FREQUENCY:DAILY FOR 42 DAYS;?
     Route: 048
     Dates: start: 20190411
  6. TRULICITY, VITAMIN D [Concomitant]
  7. GLIMEPIRIDE, IBUPROFEN, LOSARTAN/HCT [Concomitant]
  8. MAGNESIUM, MELATONIN, METFORMIN [Concomitant]

REACTIONS (1)
  - Brain neoplasm [None]

NARRATIVE: CASE EVENT DATE: 20190502
